FAERS Safety Report 9204211 (Version 3)
Quarter: 2013Q2

REPORT INFORMATION
  Report Type: Spontaneous
  Country: US (occurrence: US)
  Receive Date: 20130402
  Receipt Date: 20130605
  Transmission Date: 20140414
  Serious: Yes (Hospitalization, Other)
  Sender: FDA-Public Use
  Company Number: US-PFIZER INC-2013104696

PATIENT
  Age: 85 Year
  Sex: Male
  Weight: 79.37 kg

DRUGS (5)
  1. ARTHROTEC [Suspect]
     Indication: OSTEOARTHRITIS
     Dosage: [DICLOFENAC 75]/ [MISOPROSTOL 200 MCG], 2X/DAY
     Route: 048
     Dates: end: 20130104
  2. ARTHROTEC [Suspect]
     Indication: ARTHRITIS
  3. LIPITOR [Suspect]
     Dosage: 40 MG, DAILY
  4. ACCUPRIL [Suspect]
     Dosage: UNK, DAILY
  5. ASPIRIN [Suspect]
     Dosage: UNK

REACTIONS (4)
  - Osteoarthritis [Unknown]
  - Diverticulitis [Recovered/Resolved]
  - Diverticulum intestinal haemorrhagic [Recovered/Resolved]
  - Gastric haemorrhage [Unknown]
